FAERS Safety Report 7651250-2 (Version None)
Quarter: 2011Q3

REPORT INFORMATION
  Report Type: 
  Country: None (occurrence: None)
  Receive Date: 20110802
  Receipt Date: 20110725
  Transmission Date: 20111222
  Serious: Yes (Death, Life-Threatening, Hospitalization)
  Sender: FDA-Public Use
  Company Number: ES-PFIZER INC-2009308397

PATIENT
  Age: 55 Year
  Sex: Male

DRUGS (6)
  1. IDARUBICIN HCL [Suspect]
     Indication: ACUTE MYELOID LEUKAEMIA
     Dosage: UNK
     Route: 042
     Dates: start: 20090110, end: 20090116
  2. GEMTUZUMAB OZOGAMICIN [Suspect]
     Indication: ACUTE MYELOID LEUKAEMIA
     Dosage: UNK
     Route: 042
     Dates: start: 20090110, end: 20090116
  3. CYTARABINE [Suspect]
     Indication: ACUTE MYELOID LEUKAEMIA
     Dosage: UNK MG, 1X/DAY
     Route: 042
     Dates: start: 20090110, end: 20090116
  4. GEMTUZUMAB OZOGAMICIN [Suspect]
     Dosage: 10 MG, 1X/DAY
     Route: 042
     Dates: start: 20090320, end: 20090320
  5. IDARUBICIN HCL [Suspect]
     Dosage: 20 MG, 1X/DAY
     Dates: start: 20090321, end: 20090323
  6. CYTARABINE [Suspect]
     Dosage: 174 MG, 1X/DAY
     Dates: start: 20090320, end: 20090326

REACTIONS (3)
  - ACUTE HEPATIC FAILURE [None]
  - RENAL FAILURE [None]
  - HEPATOTOXICITY [None]
